FAERS Safety Report 19135732 (Version 4)
Quarter: 2021Q4

REPORT INFORMATION
  Report Type: Spontaneous
  Country: IN (occurrence: IN)
  Receive Date: 20210414
  Receipt Date: 20211110
  Transmission Date: 20220303
  Serious: Yes (Other)
  Sender: FDA-Public Use
  Company Number: IN-PFIZER INC-2021319192

PATIENT
  Age: 67 Year
  Sex: Female

DRUGS (3)
  1. PALBOCICLIB [Suspect]
     Active Substance: PALBOCICLIB
     Indication: Breast cancer metastatic
     Dosage: 125 MG, 1X/DAY
     Route: 048
     Dates: start: 20190917
  2. PALBOCICLIB [Suspect]
     Active Substance: PALBOCICLIB
     Dosage: 125 MG OD
     Route: 048
     Dates: start: 20210715
  3. FULVESTRANT [Suspect]
     Active Substance: FULVESTRANT
     Dosage: 250 MG

REACTIONS (3)
  - Spinal cord injury [Unknown]
  - Off label use [Unknown]
  - Product use issue [Unknown]
